FAERS Safety Report 18145877 (Version 1)
Quarter: 2020Q3

REPORT INFORMATION
  Report Type: Report from Study
  Country: US (occurrence: US)
  Receive Date: 20200813
  Receipt Date: 20200813
  Transmission Date: 20201103
  Serious: Yes (Hospitalization)
  Sender: FDA-Public Use
  Company Number: US-BIOGEN-2020BI00908877

PATIENT
  Sex: Female

DRUGS (1)
  1. TECFIDERA [Suspect]
     Active Substance: DIMETHYL FUMARATE
     Indication: MULTIPLE SCLEROSIS
     Dosage: MAINTENANCE DOSE
     Route: 048
     Dates: start: 20140702

REACTIONS (16)
  - Anxiety [Unknown]
  - Peripheral swelling [Unknown]
  - Weight decreased [Unknown]
  - Thyroid disorder [Unknown]
  - Loss of control of legs [Unknown]
  - Fall [Recovered/Resolved]
  - Syncope [Unknown]
  - Eating disorder [Unknown]
  - Foot fracture [Unknown]
  - Feeling hot [Unknown]
  - Abdominal pain upper [Unknown]
  - Gallbladder enlargement [Unknown]
  - Pain in extremity [Unknown]
  - Malaise [Unknown]
  - Visual impairment [Unknown]
  - Gastrooesophageal reflux disease [Unknown]
